FAERS Safety Report 18451696 (Version 1)
Quarter: 2020Q4

REPORT INFORMATION
  Report Type: Spontaneous
  Country: US (occurrence: US)
  Receive Date: 20201030
  Receipt Date: 20201030
  Transmission Date: 20210114
  Serious: Yes (Hospitalization)
  Sender: FDA-Public Use
  Company Number: None

PATIENT
  Age: 77 Year
  Sex: Female

DRUGS (1)
  1. DOFETILIDE. [Suspect]
     Active Substance: DOFETILIDE
     Indication: PRODUCT USED FOR UNKNOWN INDICATION
     Dosage: STRENGTH + DOSAGE: 250 UNK
     Route: 048
     Dates: start: 20201003

REACTIONS (2)
  - Endovenous ablation [None]
  - Surgery [None]

NARRATIVE: CASE EVENT DATE: 20201029
